FAERS Safety Report 15165316 (Version 3)
Quarter: 2019Q1

REPORT INFORMATION
  Report Type: Spontaneous
  Country: JP (occurrence: JP)
  Receive Date: 20180719
  Receipt Date: 20190218
  Transmission Date: 20190417
  Serious: Yes (Other)
  Sender: FDA-Public Use
  Company Number: JP-JNJFOC-20180718336

PATIENT
  Age: 45 Year
  Sex: Female

DRUGS (4)
  1. ONEDURO [Suspect]
     Active Substance: FENTANYL
     Indication: PAIN
     Dosage: 12.5MCG/HOUR
     Route: 062
     Dates: start: 2017
  2. DEPAS (ETIZOLAM) [Concomitant]
     Active Substance: ETIZOLAM
     Route: 065
  3. ONEDURO [Suspect]
     Active Substance: FENTANYL
     Indication: PAIN
     Dosage: 12.5 UG/HR, 25 UG/HR AND 50 UG/HR
     Route: 062
  4. ONEDURO [Suspect]
     Active Substance: FENTANYL
     Indication: PAIN
     Route: 062
     Dates: start: 20190206

REACTIONS (20)
  - Loss of consciousness [Unknown]
  - Oedema peripheral [Unknown]
  - Constipation [Unknown]
  - Wrong technique in product usage process [Unknown]
  - Head discomfort [Unknown]
  - Product adhesion issue [Unknown]
  - Dizziness [Unknown]
  - Dyspnoea [Unknown]
  - Somnolence [Unknown]
  - Pruritus [Unknown]
  - Off label use [Unknown]
  - Urinary retention [Unknown]
  - Application site dermatitis [Unknown]
  - Fall [Unknown]
  - Onychoclasis [Unknown]
  - Respiratory depression [Unknown]
  - Pain [Unknown]
  - Physical deconditioning [Unknown]
  - Delirium [Unknown]
  - Surgery [Unknown]

NARRATIVE: CASE EVENT DATE: 20190206
